FAERS Safety Report 8490717-4 (Version None)
Quarter: 2012Q3

REPORT INFORMATION
  Report Type: 
  Country: None (occurrence: None)
  Receive Date: 20120706
  Receipt Date: 20120629
  Transmission Date: 20120928
  Serious: Yes (Other)
  Sender: FDA-Public Use
  Company Number: US-AMGEN-USASP2012040610

PATIENT
  Age: 43 Year
  Sex: Female

DRUGS (1)
  1. ENBREL [Suspect]
     Indication: RHEUMATOID ARTHRITIS
     Dosage: UNK
     Dates: start: 20080215, end: 20101101

REACTIONS (6)
  - PANCREATIC NEOPLASM [None]
  - ABDOMINAL PAIN [None]
  - INFLAMMATION [None]
  - DYSPEPSIA [None]
  - PANCREATITIS CHRONIC [None]
  - APHAGIA [None]
